FAERS Safety Report 9998222 (Version 2)
Quarter: 2014Q2

REPORT INFORMATION
  Report Type: Spontaneous
  Country: IT (occurrence: IT)
  Receive Date: 20140311
  Receipt Date: 20140429
  Transmission Date: 20141212
  Serious: Yes (Other)
  Sender: FDA-Public Use
  Company Number: IT-MYLANLABS-2014S1004699

PATIENT
  Age: 42 Year
  Sex: Female
  Weight: 67 kg

DRUGS (8)
  1. PACLITAXEL [Suspect]
     Indication: BREAST CANCER
     Dosage: 130 MG CYCLICAL
     Route: 042
     Dates: start: 20130611, end: 20131211
  2. HERCEPTIN [Suspect]
     Indication: BREAST CANCER
     Dosage: 150 MG CYCLICAL
     Route: 042
     Dates: start: 20130612
  3. ZOMETA [Suspect]
     Indication: BREAST CANCER
     Dosage: 4 MG CYCLICAL
     Route: 042
     Dates: start: 20130617
  4. ZANTAC [Concomitant]
     Indication: PREMEDICATION
     Dosage: 1 DF
     Route: 048
  5. SOLU MEDROL [Concomitant]
     Indication: PREMEDICATION
     Route: 042
  6. ALOXI [Concomitant]
     Indication: PREMEDICATION
  7. SOLDESAM [Concomitant]
     Indication: PRODUCT USED FOR UNKNOWN INDICATION
  8. GLUCOSE [Concomitant]
     Indication: PRODUCT USED FOR UNKNOWN INDICATION

REACTIONS (2)
  - Diarrhoea [Recovered/Resolved]
  - Dysuria [Recovered/Resolved]
